FAERS Safety Report 6888128-8 (Version None)
Quarter: 2010Q3

REPORT INFORMATION
  Report Type: 
  Country: None (occurrence: None)
  Receive Date: 20100708
  Receipt Date: 20091015
  Transmission Date: 20110219
  Serious: Yes (Hospitalization, Other)
  Sender: FDA-Public Use
  Company Number: 2009286241

PATIENT
  Age: 63 Year
  Sex: Male
  Weight: 94 kg

DRUGS (3)
  1. CHANTIX [Suspect]
     Indication: SMOKING CESSATION THERAPY
     Dosage: 1 MG, 2X/DAY, ORAL; 0.5 MG 1X/DAY, ORAL
     Route: 048
     Dates: start: 20090101
  2. CHANTIX [Suspect]
     Indication: SMOKING CESSATION THERAPY
     Dosage: 1 MG, 2X/DAY, ORAL; 0.5 MG 1X/DAY, ORAL
     Route: 048
     Dates: start: 20090501
  3. PLAVIX [Concomitant]

REACTIONS (6)
  - DIZZINESS [None]
  - IMPATIENCE [None]
  - IRRITABILITY [None]
  - MOOD ALTERED [None]
  - MYOCARDIAL INFARCTION [None]
  - SOMNOLENCE [None]
